FAERS Safety Report 22094125 (Version 1)
Quarter: 2023Q1

REPORT INFORMATION
  Report Type: Spontaneous
  Country: US (occurrence: US)
  Receive Date: 20230314
  Receipt Date: 20230314
  Transmission Date: 20230418
  Serious: No
  Sender: FDA-Public Use
  Company Number: US-Dermavant-000313

PATIENT
  Sex: Female

DRUGS (1)
  1. TAPINAROF [Suspect]
     Active Substance: TAPINAROF
     Indication: Psoriasis

REACTIONS (5)
  - Application site erythema [Unknown]
  - Joint stiffness [Unknown]
  - Paraesthesia [Unknown]
  - Application site joint swelling [Unknown]
  - Discomfort [Unknown]
